FAERS Safety Report 12099553 (Version 1)
Quarter: 2016Q1

REPORT INFORMATION
  Report Type: Spontaneous
  Country: US (occurrence: None)
  Receive Date: 20160219
  Receipt Date: 20160219
  Transmission Date: 20160526
  Serious: No
  Sender: FDA-Public Use
  Company Number: None

PATIENT

DRUGS (3)
  1. WARFARIN SODIUM (WARFARIN) [Suspect]
     Active Substance: WARFARIN SODIUM
     Route: 048
  2. WARFARIN SODIUM (WARFARIN) [Suspect]
     Active Substance: WARFARIN SODIUM
     Route: 048
  3. WARFARIN SODIUM (WARFARIN) [Suspect]
     Active Substance: WARFARIN SODIUM
     Route: 048

REACTIONS (4)
  - Drug dispensed to wrong patient [None]
  - Transcription medication error [None]
  - Intercepted medication error [None]
  - Drug prescribing error [None]
